FAERS Safety Report 14934505 (Version 1)
Quarter: 2018Q2

REPORT INFORMATION
  Report Type: Spontaneous
  Country: US (occurrence: US)
  Receive Date: 20180505
  Receipt Date: 20180505
  Transmission Date: 20180711
  Serious: Yes (Hospitalization, Disabling, Other)
  Sender: FDA-Public Use
  Company Number: None

PATIENT
  Age: 48 Year
  Sex: Female
  Weight: 67.5 kg

DRUGS (5)
  1. LEVOFLOXACIN. [Suspect]
     Active Substance: LEVOFLOXACIN
  2. LEVOTHYROXINE. [Concomitant]
     Active Substance: LEVOTHYROXINE
  3. CIPROFLOXACIN. [Suspect]
     Active Substance: CIPROFLOXACIN
     Indication: STREPTOCOCCAL INFECTION
     Dosage: ?          QUANTITY:14 CAPSULE(S);?
     Route: 048
     Dates: start: 20170501, end: 20170507
  4. INDOMETHACIN. [Concomitant]
     Active Substance: INDOMETHACIN
  5. GABAPENTIN. [Concomitant]
     Active Substance: GABAPENTIN

REACTIONS (12)
  - Adrenal disorder [None]
  - Paraesthesia [None]
  - Headache [None]
  - Gastrooesophageal reflux disease [None]
  - Dyspepsia [None]
  - Visual impairment [None]
  - Arthropathy [None]
  - Cortisol abnormal [None]
  - Pain in extremity [None]
  - Neck pain [None]
  - Chest pain [None]
  - Formication [None]

NARRATIVE: CASE EVENT DATE: 20170520
